FAERS Safety Report 11091160 (Version 4)
Quarter: 2015Q3

REPORT INFORMATION
  Report Type: Spontaneous
  Country: US (occurrence: US)
  Receive Date: 20150505
  Receipt Date: 20150717
  Transmission Date: 20151125
  Serious: Yes (Hospitalization, Other)
  Sender: FDA-Public Use
  Company Number: US-PFIZER INC-2015151330

PATIENT
  Age: 76 Year
  Sex: Male
  Weight: 87.48 kg

DRUGS (14)
  1. SUTENT [Suspect]
     Active Substance: SUNITINIB MALATE
     Indication: METASTATIC RENAL CELL CARCINOMA
     Dosage: UNK
     Dates: start: 20140301
  2. SUTENT [Suspect]
     Active Substance: SUNITINIB MALATE
     Dosage: 37.5 MG, DAILY
     Dates: start: 20141101
  3. IRON [Concomitant]
     Active Substance: IRON
     Dosage: UNK
  4. TAMSULOSIN [Concomitant]
     Active Substance: TAMSULOSIN
     Dosage: UNK
  5. XGEVA [Concomitant]
     Active Substance: DENOSUMAB
     Dosage: UNK
  6. VITAMIN C [Concomitant]
     Active Substance: ASCORBIC ACID
     Dosage: UNK
  7. VITAMIN D [Concomitant]
     Active Substance: CHOLECALCIFEROL
     Dosage: UNK
  8. METOPROLOL [Concomitant]
     Active Substance: METOPROLOL
     Dosage: UNK
  9. ZOLPIDEM [Concomitant]
     Active Substance: ZOLPIDEM\ZOLPIDEM TARTRATE
     Dosage: UNK
  10. IMODIUM [Concomitant]
     Active Substance: LOPERAMIDE HYDROCHLORIDE
     Dosage: UNK
  11. MAGIC MOUTHWASH [Concomitant]
     Active Substance: DIPHENHYDRAMINE HYDROCHLORIDE\LIDOCAINE HYDROCHLORIDE\NYSTATIN
     Dosage: UNK
  12. OXYCODONE [Concomitant]
     Active Substance: OXYCODONE
     Dosage: UNK, AS NEEDED
  13. LOVENOX [Concomitant]
     Active Substance: ENOXAPARIN SODIUM
     Dosage: UNK
  14. OMEPRAZOLE. [Concomitant]
     Active Substance: OMEPRAZOLE
     Dosage: UNK

REACTIONS (23)
  - Haemoglobin decreased [Unknown]
  - Fall [Unknown]
  - Dysgeusia [Unknown]
  - Clostridium difficile infection [Unknown]
  - Sleep disorder [Unknown]
  - Abdominal discomfort [Unknown]
  - Gastrointestinal disorder [Unknown]
  - Stomatitis [Not Recovered/Not Resolved]
  - Glossodynia [Not Recovered/Not Resolved]
  - Oral pain [Unknown]
  - Ileus [Unknown]
  - Pericardial effusion [Unknown]
  - Weight decreased [Not Recovered/Not Resolved]
  - Dizziness [Unknown]
  - Decreased appetite [Unknown]
  - Constipation [Unknown]
  - Anaemia [Unknown]
  - Gallbladder disorder [Unknown]
  - Dyspnoea [Unknown]
  - Swollen tongue [Unknown]
  - Peripheral swelling [Unknown]
  - Diarrhoea [Recovered/Resolved]
  - Frequent bowel movements [Recovering/Resolving]
